FAERS Safety Report 11232152 (Version 11)
Quarter: 2020Q3

REPORT INFORMATION
  Report Type: Spontaneous
  Country: US (occurrence: US)
  Receive Date: 20150701
  Receipt Date: 20200908
  Transmission Date: 20201102
  Serious: Yes (Hospitalization, Other)
  Sender: FDA-Public Use
  Company Number: US-PFIZER INC-2015219842

PATIENT
  Age: 56 Year
  Sex: Female
  Weight: 72 kg

DRUGS (2)
  1. LYRICA [Suspect]
     Active Substance: PREGABALIN
     Dosage: 75 MG, 2X/DAY
     Route: 048
  2. LYRICA [Suspect]
     Active Substance: PREGABALIN
     Indication: RHEUMATOID ARTHRITIS
     Dosage: 150 MG, 2X/DAY
     Route: 048

REACTIONS (17)
  - Viral infection [Unknown]
  - Fatigue [Unknown]
  - Pain [Unknown]
  - Bronchitis [Unknown]
  - Weight increased [Unknown]
  - Cardiac disorder [Unknown]
  - Sciatica [Unknown]
  - Neuropathy peripheral [Unknown]
  - Back pain [Unknown]
  - Illness [Unknown]
  - Drug ineffective for unapproved indication [Unknown]
  - Feeling abnormal [Unknown]
  - Off label use [Unknown]
  - Product dose omission issue [Unknown]
  - Gait disturbance [Unknown]
  - Autoimmune disorder [Unknown]
  - Pain in extremity [Unknown]

NARRATIVE: CASE EVENT DATE: 2016
